FAERS Safety Report 5563944-3 (Version None)
Quarter: 2007Q4

REPORT INFORMATION
  Report Type: 
  Country: None (occurrence: None)
  Receive Date: 20071217
  Receipt Date: 20071206
  Transmission Date: 20080405
  Serious: Yes (Other)
  Sender: FDA-Public Use
  Company Number: US-AMGEN-QUU255613

PATIENT
  Sex: Female

DRUGS (3)
  1. ENBREL [Suspect]
     Indication: RHEUMATOID ARTHRITIS
     Route: 058
     Dates: start: 20021217
  2. METHOTREXATE [Concomitant]
     Dates: start: 19970101
  3. IBUPROFEN [Concomitant]

REACTIONS (5)
  - ARTHROPOD BITE [None]
  - CARDIAC MURMUR [None]
  - DYSPEPSIA [None]
  - HEADACHE [None]
  - MALAISE [None]
